FAERS Safety Report 17968306 (Version 1)
Quarter: 2020Q3

REPORT INFORMATION
  Report Type: Spontaneous
  Country: AU (occurrence: AU)
  Receive Date: 20200701
  Receipt Date: 20200701
  Transmission Date: 20201103
  Serious: Yes (Hospitalization)
  Sender: FDA-Public Use
  Company Number: AU-ROCHE-2631753

PATIENT
  Age: 68 Year
  Sex: Female

DRUGS (8)
  1. HYDROCORTISONE. [Concomitant]
     Active Substance: HYDROCORTISONE
     Route: 065
  2. CHLORAMBUCIL [Suspect]
     Active Substance: CHLORAMBUCIL
     Indication: CHRONIC LYMPHOCYTIC LEUKAEMIA
     Dosage: TOTAL 20.5 ML
     Route: 065
  3. PROMETHAZINE [Concomitant]
     Active Substance: PROMETHAZINE HYDROCHLORIDE
     Route: 065
  4. PANADOL [Concomitant]
     Active Substance: ACETAMINOPHEN
  5. LORATADINE. [Concomitant]
     Active Substance: LORATADINE
  6. PROMETHAZINE [Concomitant]
     Active Substance: PROMETHAZINE HYDROCHLORIDE
     Route: 065
  7. GAZYVA [Suspect]
     Active Substance: OBINUTUZUMAB
     Indication: CHRONIC LYMPHOCYTIC LEUKAEMIA
     Dosage: TOTAL 20.5 ML
     Route: 042
     Dates: start: 201905
  8. HYDROCORTISONE. [Concomitant]
     Active Substance: HYDROCORTISONE
     Route: 065

REACTIONS (8)
  - Thyroid adenoma [Unknown]
  - Hypotension [Unknown]
  - Anxiety [Unknown]
  - Throat tightness [Unknown]
  - Hyperhidrosis [Unknown]
  - Chest discomfort [Unknown]
  - Treatment noncompliance [Unknown]
  - Tachycardia [Not Recovered/Not Resolved]
